FAERS Safety Report 13269419 (Version 2)
Quarter: 2017Q1

REPORT INFORMATION
  Report Type: Spontaneous
  Country: CH (occurrence: CH)
  Receive Date: 20170224
  Receipt Date: 20170327
  Transmission Date: 20170428
  Serious: Yes (Other)
  Sender: FDA-Public Use
  Company Number: CH-BAYER-2017-033627

PATIENT
  Sex: Male

DRUGS (4)
  1. XOFIGO [Suspect]
     Active Substance: RADIUM RA-223 DICHLORIDE
     Dosage: 3.01 MBQ
     Dates: start: 20161221
  2. XOFIGO [Suspect]
     Active Substance: RADIUM RA-223 DICHLORIDE
     Dosage: 3.29 MBQ
     Dates: start: 20161124
  3. XOFIGO [Suspect]
     Active Substance: RADIUM RA-223 DICHLORIDE
     Dosage: 3.0 MBQ
     Dates: start: 20170118
  4. XOFIGO [Suspect]
     Active Substance: RADIUM RA-223 DICHLORIDE
     Dosage: 3.28 MBQ
     Dates: start: 20161027

REACTIONS (6)
  - General physical health deterioration [Unknown]
  - Prostatic specific antigen increased [None]
  - Fatigue [None]
  - Prostatic specific antigen increased [Unknown]
  - Haemoglobin decreased [None]
  - Asthenia [None]

NARRATIVE: CASE EVENT DATE: 20161227
